FAERS Safety Report 21029464 (Version 1)
Quarter: 2022Q2

REPORT INFORMATION
  Report Type: Report from Study
  Country: BR (occurrence: BR)
  Receive Date: 20220630
  Receipt Date: 20220630
  Transmission Date: 20220720
  Serious: Yes (Other)
  Sender: FDA-Public Use
  Company Number: BR-TAKEDA-2022TUS043311

PATIENT
  Age: 68 Year

DRUGS (1)
  1. ANTI-INHIBITOR COAGULANT COMPLEX [Suspect]
     Active Substance: ANTI-INHIBITOR COAGULANT COMPLEX
     Indication: Haemophilia A with anti factor VIII
     Dosage: UNK
     Route: 065
     Dates: start: 201211

REACTIONS (2)
  - Haemorrhage [Unknown]
  - Treatment failure [Unknown]
